FAERS Safety Report 6951695-X (Version None)
Quarter: 2010Q3

REPORT INFORMATION
  Report Type: 
  Country: None (occurrence: None)
  Receive Date: 20100828
  Receipt Date: 20100405
  Transmission Date: 20110219
  Serious: No
  Sender: FDA-Public Use
  Company Number: US-ABBOTT-10P-163-0637720-00

PATIENT
  Sex: Female
  Weight: 63.56 kg

DRUGS (7)
  1. NIASPAN [Suspect]
     Indication: BLOOD CHOLESTEROL INCREASED
     Dosage: 1 EVERY NIGHT
     Route: 048
     Dates: start: 20100303, end: 20100331
  2. LORATADINE [Concomitant]
     Indication: SEASONAL ALLERGY
     Dosage: AS NEEDED
     Route: 055
  3. RHINOCORT SPRAY [Concomitant]
     Indication: SEASONAL ALLERGY
     Dosage: AS NEEDED
     Route: 055
  4. MULTI-VITAMIN [Concomitant]
     Indication: VITAMIN SUPPLEMENTATION
  5. TUMS [Concomitant]
     Indication: MINERAL SUPPLEMENTATION
  6. VITAMIN D [Concomitant]
     Indication: VITAMIN SUPPLEMENTATION
  7. ASPIRIN [Concomitant]
     Indication: PRODUCT USED FOR UNKNOWN INDICATION

REACTIONS (3)
  - HOT FLUSH [None]
  - LIP SWELLING [None]
  - OEDEMA MOUTH [None]
